FAERS Safety Report 15680538 (Version 1)
Quarter: 2018Q4

REPORT INFORMATION
  Report Type: Spontaneous
  Country: US (occurrence: US)
  Receive Date: 20181203
  Receipt Date: 20181203
  Transmission Date: 20190205
  Serious: No
  Sender: FDA-Public Use
  Company Number: US-TEVA-2018-US-975109

PATIENT
  Sex: Male

DRUGS (2)
  1. TRAZODONE HYDROCHLORIDE. [Suspect]
     Active Substance: TRAZODONE HYDROCHLORIDE
     Indication: ANXIETY
     Route: 065
     Dates: start: 20181029
  2. TRAZODONE HYDROCHLORIDE. [Suspect]
     Active Substance: TRAZODONE HYDROCHLORIDE
     Indication: SLEEP DISORDER

REACTIONS (14)
  - Diarrhoea [Unknown]
  - Agitation [Unknown]
  - Delusion [Unknown]
  - Myalgia [Unknown]
  - Confusional state [Unknown]
  - Mood altered [Unknown]
  - Anxiety [Unknown]
  - Speech disorder [Unknown]
  - Hypoaesthesia [Unknown]
  - Insomnia [Unknown]
  - Illusion [Unknown]
  - Disorientation [Unknown]
  - Balance disorder [Unknown]
  - Nightmare [Unknown]

NARRATIVE: CASE EVENT DATE: 20181105
